FAERS Safety Report 7129601-7 (Version None)
Quarter: 2010Q4

REPORT INFORMATION
  Report Type: 
  Country: None (occurrence: None)
  Receive Date: 20101130
  Receipt Date: 20101118
  Transmission Date: 20110411
  Serious: Yes (Hospitalization)
  Sender: FDA-Public Use
  Company Number: PHHO2010KR17475

PATIENT
  Sex: Male
  Weight: 69 kg

DRUGS (1)
  1. AFINITOR [Suspect]
     Indication: PHAEOCHROMOCYTOMA
     Dosage: 10 MG
     Route: 048
     Dates: start: 20101005, end: 20101101

REACTIONS (5)
  - ASTHENIA [None]
  - HYPOPHAGIA [None]
  - NAUSEA [None]
  - THROMBOCYTOPENIA [None]
  - VOMITING [None]
